FAERS Safety Report 20532685 (Version 1)
Quarter: 2022Q1

REPORT INFORMATION
  Report Type: Spontaneous
  Country: US (occurrence: US)
  Receive Date: 20220301
  Receipt Date: 20220301
  Transmission Date: 20220424
  Serious: No
  Sender: FDA-Public Use
  Company Number: US-APOTEX-2022AP002532

PATIENT
  Sex: Female

DRUGS (5)
  1. BUTORPHANOL TARTRATE [Suspect]
     Active Substance: BUTORPHANOL TARTRATE
     Indication: Migraine
     Dosage: UNK UNK, BID, 1-2 SPRAYS
     Route: 045
     Dates: start: 20220115
  2. UBRELVY [Concomitant]
     Active Substance: UBROGEPANT
     Indication: Headache
     Dosage: UNK UNK, PRN, (GET 10 TABLETS A MONTH
     Route: 065
  3. REYVOW [Concomitant]
     Active Substance: LASMIDITAN
     Indication: Headache
     Dosage: UNK UNK, PRN
     Route: 065
  4. KETOROLAC [Concomitant]
     Active Substance: KETOROLAC TROMETHAMINE
     Indication: Inflammation
     Dosage: UNK, (EITHER 60MG OR 60ML) 4 TIMES A MONTH
     Route: 065
  5. FIORICET [Concomitant]
     Active Substance: ACETAMINOPHEN\BUTALBITAL\CAFFEINE
     Indication: Product used for unknown indication
     Dosage: UNK UNK, PRN, 14 TO 15 TIMES A MONTH
     Route: 065

REACTIONS (3)
  - Product packaging quantity issue [Unknown]
  - No adverse event [Unknown]
  - Drug ineffective [Unknown]
